FAERS Safety Report 5238771-7 (Version None)
Quarter: 2007Q1

REPORT INFORMATION
  Report Type: 
  Country: None (occurrence: None)
  Receive Date: 20070215
  Receipt Date: 20070207
  Transmission Date: 20070707
  Serious: Yes (Other)
  Sender: FDA-Public Use
  Company Number: IE-PFIZER INC-2006148151

PATIENT
  Sex: Male

DRUGS (2)
  1. EPANUTIN SUSPENSION [Suspect]
     Route: 048
  2. PHENOBARBITONE [Concomitant]
     Indication: CONVULSION
     Route: 048
     Dates: start: 20060907

REACTIONS (2)
  - ANTICONVULSANT DRUG LEVEL BELOW THERAPEUTIC [None]
  - CONVULSION [None]
